FAERS Safety Report 6223220-2 (Version None)
Quarter: 2009Q2

REPORT INFORMATION
  Report Type: 
  Country: None (occurrence: None)
  Receive Date: 20090611
  Receipt Date: 20090602
  Transmission Date: 20091009
  Serious: Yes (Hospitalization)
  Sender: FDA-Public Use
  Company Number: FR-AVENTIS-200912020FR

PATIENT
  Age: 14 Year
  Sex: Female

DRUGS (3)
  1. LOVENOX [Suspect]
     Indication: THROMBOPHLEBITIS
     Route: 058
     Dates: start: 20090114, end: 20090123
  2. PREVISCAN                          /00789001/ [Suspect]
     Indication: THROMBOPHLEBITIS
     Route: 048
     Dates: start: 20090115, end: 20090119
  3. DOLIPRANE [Concomitant]
     Indication: DRUG USE FOR UNKNOWN INDICATION
     Route: 048
     Dates: start: 20090114, end: 20090114

REACTIONS (3)
  - CYTOLYTIC HEPATITIS [None]
  - DRUG RASH WITH EOSINOPHILIA AND SYSTEMIC SYMPTOMS [None]
  - NEUTROPENIA [None]
